FAERS Safety Report 5532067-1 (Version None)
Quarter: 2007Q4

REPORT INFORMATION
  Report Type: 
  Country: None (occurrence: None)
  Receive Date: 20071203
  Receipt Date: 20071122
  Transmission Date: 20080405
  Serious: Yes (Hospitalization)
  Sender: FDA-Public Use
  Company Number: B0497141A

PATIENT
  Age: 41 Year
  Sex: Female

DRUGS (3)
  1. LAMICTAL [Suspect]
     Indication: EPILEPSY
     Dosage: 150MG PER DAY
     Route: 048
     Dates: end: 20071029
  2. TEGRETOL [Suspect]
     Indication: EPILEPSY
     Dosage: 1400MG PER DAY
     Route: 048
     Dates: end: 20071029
  3. DEPAKINE CHRONO [Suspect]
     Indication: EPILEPSY
     Dosage: 1500MG PER DAY
     Route: 048
     Dates: end: 20071029

REACTIONS (8)
  - AGITATION [None]
  - HYPERTHERMIA [None]
  - LEUKOPENIA [None]
  - MALAISE [None]
  - NEUTROPENIA [None]
  - PETIT MAL EPILEPSY [None]
  - PHOTOPHOBIA [None]
  - VOMITING [None]
